FAERS Safety Report 11345119 (Version 1)
Quarter: 2015Q3

REPORT INFORMATION
  Report Type: Spontaneous
  Country: PL (occurrence: PL)
  Receive Date: 20150806
  Receipt Date: 20150806
  Transmission Date: 20151125
  Serious: Yes (Other)
  Sender: FDA-Public Use
  Company Number: PL-FRESENIUS KABI-FK201503725

PATIENT
  Age: 30 Day
  Sex: Male

DRUGS (1)
  1. CEFTRIAXON (MANUFACTURER UNKNOWN) [Suspect]
     Active Substance: CEFTRIAXONE
     Indication: ANTIBIOTIC PROPHYLAXIS
     Route: 042

REACTIONS (2)
  - Cholelithiasis [Not Recovered/Not Resolved]
  - Hyperbilirubinaemia [Not Recovered/Not Resolved]
